FAERS Safety Report 4783425-4 (Version None)
Quarter: 2005Q3

REPORT INFORMATION
  Report Type: 
  Country: None (occurrence: None)
  Receive Date: 20050928
  Receipt Date: 20050928
  Transmission Date: 20060218
  Serious: Yes (Hospitalization)
  Sender: FDA-Public Use
  Company Number: None

PATIENT
  Age: 67 Year
  Sex: Female
  Weight: 56 kg

DRUGS (3)
  1. ZITHROMAX [Suspect]
     Indication: ANTIBIOTIC PROPHYLAXIS
     Dosage: 250 MG
     Dates: start: 20050927, end: 20050927
  2. DECADRON [Concomitant]
  3. BENADRYL [Concomitant]

REACTIONS (3)
  - DYSPNOEA [None]
  - POST PROCEDURAL COMPLICATION [None]
  - SWELLING [None]
